FAERS Safety Report 9686783 (Version 1)
Quarter: 2013Q4

REPORT INFORMATION
  Report Type: Spontaneous
  Country: US (occurrence: US)
  Receive Date: 20131113
  Receipt Date: 20131113
  Transmission Date: 20140711
  Serious: No
  Sender: FDA-Public Use
  Company Number: US-BAYER-2013-138400

PATIENT
  Age: 37 Year
  Sex: Female

DRUGS (2)
  1. GADAVIST [Suspect]
     Indication: NUCLEAR MAGNETIC RESONANCE IMAGING SPINAL
     Dosage: 5.5 ML, PO
     Route: 042
     Dates: start: 20131102, end: 20131102
  2. GADAVIST [Suspect]
     Indication: PAIN

REACTIONS (2)
  - Throat tightness [Recovered/Resolved]
  - Urticaria [Recovered/Resolved]
